FAERS Safety Report 9147629 (Version 2)
Quarter: 2013Q2

REPORT INFORMATION
  Report Type: Report from Study
  Country: US (occurrence: US)
  Receive Date: 20130307
  Receipt Date: 20130523
  Transmission Date: 20140414
  Serious: Yes (Death, Hospitalization, Other)
  Sender: FDA-Public Use
  Company Number: US-ACTELION-A-US2012-73656

PATIENT
  Age: 61 Year
  Sex: Male

DRUGS (3)
  1. VELETRI [Suspect]
     Indication: PULMONARY ARTERIAL HYPERTENSION
     Dosage: 9 NG/KG, PER MIN
     Route: 042
     Dates: start: 20120924, end: 20121120
  2. VELETRI [Suspect]
     Dosage: 12 NG/KG, PER MIN
     Route: 042
     Dates: start: 20120925
  3. VELETRI [Suspect]
     Dosage: 9 NG/KG, PER MIN
     Route: 042
     Dates: start: 20120921, end: 20120924

REACTIONS (9)
  - Endocarditis [Fatal]
  - Device related infection [Not Recovered/Not Resolved]
  - Catheter site discharge [Not Recovered/Not Resolved]
  - Device dislocation [Recovering/Resolving]
  - Nausea [Unknown]
  - Vomiting [Unknown]
  - Diarrhoea [Recovered/Resolved]
  - Headache [Recovered/Resolved]
  - Medical device complication [Not Recovered/Not Resolved]
